FAERS Safety Report 9468276 (Version 3)
Quarter: 2013Q4

REPORT INFORMATION
  Report Type: Spontaneous
  Country: IT (occurrence: IT)
  Receive Date: 20130821
  Receipt Date: 20131009
  Transmission Date: 20140711
  Serious: Yes (Hospitalization)
  Sender: FDA-Public Use
  Company Number: IT-PFIZER INC-2013241993

PATIENT
  Age: 51 Year
  Sex: Female

DRUGS (4)
  1. XANAX [Suspect]
     Dosage: 9 MG, SINGLE
     Route: 048
     Dates: start: 20130801, end: 20130801
  2. LEXOTAN [Suspect]
     Dosage: 20 ML, SINGLE
     Route: 048
     Dates: start: 20130801, end: 20130801
  3. DULOXETINE HYDROCHLORIDE [Concomitant]
     Dosage: 60 MG, UNK
  4. ALPRAZOLAM [Concomitant]
     Dosage: 0.5 MG, UNK

REACTIONS (3)
  - Overdose [Recovered/Resolved]
  - Sopor [Recovered/Resolved]
  - Drug abuse [Recovered/Resolved]
